FAERS Safety Report 8587291 (Version 3)
Quarter: 2013Q2

REPORT INFORMATION
  Report Type: Spontaneous
  Country: US (occurrence: US)
  Receive Date: 20120531
  Receipt Date: 20130527
  Transmission Date: 20140414
  Serious: Yes (Hospitalization)
  Sender: FDA-Public Use
  Company Number: US-BIOGENIDEC-2012BI018249

PATIENT
  Age: 39 Year
  Sex: Male

DRUGS (2)
  1. AVONEX [Suspect]
     Indication: MULTIPLE SCLEROSIS
     Route: 030
     Dates: start: 19970517
  2. AVONEX [Suspect]
     Indication: MULTIPLE SCLEROSIS
     Route: 030
     Dates: end: 20120812

REACTIONS (11)
  - Pain [Unknown]
  - Muscular weakness [Unknown]
  - Duodenal perforation [Recovered/Resolved]
  - Abdominal infection [Recovered/Resolved]
  - Dyspnoea [Recovered/Resolved]
  - Scotoma [Recovered/Resolved]
  - Mobility decreased [Not Recovered/Not Resolved]
  - Temperature intolerance [Unknown]
  - Loss of control of legs [Unknown]
  - Asthenia [Not Recovered/Not Resolved]
  - Fatigue [Not Recovered/Not Resolved]
